FAERS Safety Report 8097828-6 (Version None)
Quarter: 2012Q1

REPORT INFORMATION
  Report Type: 
  Country: None (occurrence: None)
  Receive Date: 20120128
  Receipt Date: 20110804
  Transmission Date: 20120608
  Serious: No
  Sender: FDA-Public Use
  Company Number: US-ABBOTT-11P-163-0844389-00

PATIENT
  Sex: Male
  Weight: 68.1 kg

DRUGS (1)
  1. HUMIRA [Suspect]
     Indication: COLITIS ULCERATIVE
     Dates: start: 20090801

REACTIONS (4)
  - INJECTION SITE PAIN [None]
  - TOOTH IMPACTED [None]
  - ABSCESS [None]
  - INCORRECT DOSE ADMINISTERED [None]
